FAERS Safety Report 4502382-9 (Version None)
Quarter: 2004Q4

REPORT INFORMATION
  Report Type: 
  Country: None (occurrence: None)
  Receive Date: 20041110
  Receipt Date: 20041027
  Transmission Date: 20050328
  Serious: Yes (Hospitalization)
  Sender: FDA-Public Use
  Company Number: 2003-06077

PATIENT
  Age: 48 Year
  Sex: Male
  Weight: 60 kg

DRUGS (4)
  1. VIREAD [Suspect]
     Indication: HIV INFECTION
     Dosage: 300 MG, 1 IN 1 D, ORAL
     Route: 048
     Dates: start: 20020115, end: 20030825
  2. VIDEX [Concomitant]
  3. SUSTIVA [Concomitant]
  4. KALETRA [Concomitant]

REACTIONS (3)
  - HYPOKALAEMIA [None]
  - HYPOPHOSPHATAEMIA [None]
  - PROTEINURIA [None]
